FAERS Safety Report 12540102 (Version 1)
Quarter: 2016Q3

REPORT INFORMATION
  Report Type: Spontaneous
  Country: JP (occurrence: JP)
  Receive Date: 20160708
  Receipt Date: 20160708
  Transmission Date: 20161109
  Serious: Yes (Death, Hospitalization, Disabling)
  Sender: FDA-Public Use
  Company Number: JP-NOVOPROD-481627

PATIENT
  Age: 83 Year
  Sex: Male
  Weight: 60 kg

DRUGS (14)
  1. FAMOTIDINE. [Concomitant]
     Active Substance: FAMOTIDINE
     Indication: ACQUIRED HAEMOPHILIA
     Dosage: 20 MG/ONE EVERY TWO DAYS
     Route: 048
  2. NOVOSEVEN [Suspect]
     Active Substance: COAGULATION FACTOR VIIA RECOMBINANT HUMAN
     Indication: ACQUIRED HAEMOPHILIA
     Dosage: 40 MG, QD
     Route: 042
     Dates: start: 20160113, end: 20160201
  3. NOVOSEVEN [Suspect]
     Active Substance: COAGULATION FACTOR VIIA RECOMBINANT HUMAN
     Indication: HAEMORRHAGE
     Dosage: 30 MG, QD (5MG EVERY 4 HOURS)
     Route: 042
     Dates: start: 20160221
  4. TRAMAL [Concomitant]
     Active Substance: TRAMADOL
     Dosage: 150 MG, QD
     Route: 048
  5. ARTIST [Concomitant]
     Active Substance: CARVEDILOL
     Indication: CARDIAC FAILURE CHRONIC
     Dosage: 2.5 MG, QD
     Route: 048
  6. FLUITRAN [Concomitant]
     Active Substance: TRICHLORMETHIAZIDE
     Indication: CARDIAC FAILURE CHRONIC
     Dosage: 2 MG, QD
     Route: 048
  7. ALFACALCIDOL [Concomitant]
     Active Substance: ALFACALCIDOL
     Indication: OSTEOPOROSIS
     Dosage: 0.5 ?G, QD
     Route: 048
  8. PIMOBENDAN [Concomitant]
     Active Substance: PIMOBENDAN
     Indication: CARDIAC FAILURE CHRONIC
     Dosage: 2.5 MG, QD
     Route: 048
  9. SULFAMETHOXAZOLE AND TRIMETHOPRIM [Concomitant]
     Active Substance: SULFAMETHOXAZOLE\TRIMETHOPRIM
     Indication: ACQUIRED HAEMOPHILIA
     Dosage: UNK
     Route: 048
  10. NOVOSEVEN [Suspect]
     Active Substance: COAGULATION FACTOR VIIA RECOMBINANT HUMAN
     Indication: MELAENA
     Dosage: 15 MG, QD (5MG EVERY 8 HOURS)
     Route: 042
     Dates: start: 20160222, end: 20160222
  11. PREDONINE [Suspect]
     Active Substance: PREDNISOLONE\PREDNISOLONE ACETATE\PREDNISOLONE SODIUM SUCCINATE
     Dosage: 20 MG, QD
     Route: 048
  12. PREDONINE [Suspect]
     Active Substance: PREDNISOLONE\PREDNISOLONE ACETATE\PREDNISOLONE SODIUM SUCCINATE
     Indication: ACQUIRED HAEMOPHILIA
     Dosage: 50 MG, QD
     Route: 048
     Dates: start: 20160105
  13. RISPERDAL [Concomitant]
     Active Substance: RISPERIDONE
     Indication: DELIRIUM
     Dosage: 0.5 MG, QD
     Route: 048
  14. LYRICA [Concomitant]
     Active Substance: PREGABALIN
     Indication: ACQUIRED HAEMOPHILIA
     Dosage: 25 MG, QD
     Route: 048

REACTIONS (1)
  - Cerebral infarction [Fatal]

NARRATIVE: CASE EVENT DATE: 20160222
